FAERS Safety Report 18985005 (Version 1)
Quarter: 2021Q1

REPORT INFORMATION
  Report Type: Other
  Country: US (occurrence: US)
  Receive Date: 20210309
  Receipt Date: 20210309
  Transmission Date: 20210420
  Serious: Yes (Other)
  Sender: FDA-Public Use
  Company Number: US-ORCHID HEALTHCARE-2107742

PATIENT
  Age: 40 Year
  Sex: Female

DRUGS (1)
  1. NARATRIPTAN [Suspect]
     Active Substance: NARATRIPTAN HYDROCHLORIDE
     Indication: MIGRAINE
     Route: 065

REACTIONS (2)
  - Overdose [Recovered/Resolved]
  - Spinal cord infarction [Recovered/Resolved]
